FAERS Safety Report 13647194 (Version 1)
Quarter: 2017Q2

REPORT INFORMATION
  Report Type: Spontaneous
  Country: US (occurrence: US)
  Receive Date: 20170613
  Receipt Date: 20170613
  Transmission Date: 20170830
  Serious: Yes (Other)
  Sender: FDA-Public Use
  Company Number: None

PATIENT
  Age: 31 Year
  Sex: Female
  Weight: 49.5 kg

DRUGS (2)
  1. CIPROFLOXACIN. [Suspect]
     Active Substance: CIPROFLOXACIN
     Indication: URINARY TRACT INFECTION
     Dosage: ?          QUANTITY:6 CAPSULE(S);?EVERY 12 HOURS ORAL
     Route: 048
  2. VITAMIND [Concomitant]

REACTIONS (4)
  - Burning sensation [None]
  - Hypoaesthesia [None]
  - Fatigue [None]
  - Arthralgia [None]

NARRATIVE: CASE EVENT DATE: 20170604
